FAERS Safety Report 12670769 (Version 1)
Quarter: 2016Q3

REPORT INFORMATION
  Report Type: Spontaneous
  Country: US (occurrence: US)
  Receive Date: 20160822
  Receipt Date: 20160822
  Transmission Date: 20161109
  Serious: No
  Sender: FDA-Public Use
  Company Number: US-JAZZ-2016-US-006055

PATIENT
  Sex: Female

DRUGS (43)
  1. XYREM [Suspect]
     Active Substance: SODIUM OXYBATE
     Indication: NARCOLEPSY
     Dosage: 2.25 G, BID
     Route: 048
     Dates: start: 200408, end: 200410
  2. DICYCLOMINE [Concomitant]
     Active Substance: DICYCLOMINE HYDROCHLORIDE
  3. ZOFRAN [Concomitant]
     Active Substance: ONDANSETRON HYDROCHLORIDE
  4. CALTRATE WITH VITAMIN D [Concomitant]
     Active Substance: CALCIUM CARBONATE\CHOLECALCIFEROL
  5. OXYCODONE HYDROCHLORIDE. [Concomitant]
     Active Substance: OXYCODONE HYDROCHLORIDE
  6. WELLBUTRIN [Concomitant]
     Active Substance: BUPROPION HYDROCHLORIDE
  7. PREDNISOLONE ACETATE. [Concomitant]
     Active Substance: PREDNISOLONE ACETATE
  8. PROMETHAZINE [Concomitant]
     Active Substance: PROMETHAZINE\PROMETHAZINE HYDROCHLORIDE
  9. NORCO [Concomitant]
     Active Substance: ACETAMINOPHEN\HYDROCODONE BITARTRATE
  10. LEVOTHYROXINE. [Concomitant]
     Active Substance: LEVOTHYROXINE
  11. ALPRAZOLAM. [Concomitant]
     Active Substance: ALPRAZOLAM
  12. ALIGN [Concomitant]
     Active Substance: BIFIDOBACTERIUM LONGUM SUBSP. INFANTIS
  13. XYREM [Suspect]
     Active Substance: SODIUM OXYBATE
     Dosage: 5 G, BID
     Route: 048
     Dates: start: 200902
  14. NAPROXEN. [Concomitant]
     Active Substance: NAPROXEN
  15. FLUVIRIN NOS [Concomitant]
     Active Substance: INFLUENZA VIRUS VACCINE
  16. IBUPROFEN. [Concomitant]
     Active Substance: IBUPROFEN
  17. GENTEAL MILD [Concomitant]
     Active Substance: HYPROMELLOSE 2910 (4000 MPA.S)
  18. METHYLPHENIDATE. [Concomitant]
     Active Substance: METHYLPHENIDATE
  19. ASPIRIN. [Concomitant]
     Active Substance: ASPIRIN
  20. REFRESH CELLUVISC [Concomitant]
     Active Substance: CARBOXYMETHYLCELLULOSE SODIUM
  21. CENTRUM SILVER [Concomitant]
     Active Substance: MINERALS\VITAMINS
  22. MODAFINIL. [Concomitant]
     Active Substance: MODAFINIL
  23. MELOXICAM. [Concomitant]
     Active Substance: MELOXICAM
  24. AZITHROMYCIN ANHYDROUS. [Concomitant]
     Active Substance: AZITHROMYCIN ANHYDROUS
  25. XYREM [Suspect]
     Active Substance: SODIUM OXYBATE
     Indication: CATAPLEXY
     Dosage: DOSE ADJUSTMENTS
     Route: 048
  26. CALCIUM 600+D [Concomitant]
     Active Substance: CALCIUM\VITAMIN D
  27. EFFEXOR [Concomitant]
     Active Substance: VENLAFAXINE HYDROCHLORIDE
  28. MAXALT [Concomitant]
     Active Substance: RIZATRIPTAN BENZOATE
  29. METRONIDAZOLE. [Concomitant]
     Active Substance: METRONIDAZOLE
  30. BENZONATATE. [Concomitant]
     Active Substance: BENZONATATE
  31. GUAIFENESIN. [Concomitant]
     Active Substance: GUAIFENESIN
  32. LOTEMAX [Concomitant]
     Active Substance: LOTEPREDNOL ETABONATE
  33. CLONAZEPAM. [Concomitant]
     Active Substance: CLONAZEPAM
  34. OXYBUTYNIN CHLORIDE. [Concomitant]
     Active Substance: OXYBUTYNIN CHLORIDE
  35. FLONASE [Concomitant]
     Active Substance: FLUTICASONE PROPIONATE
  36. PRIMIDONE. [Concomitant]
     Active Substance: PRIMIDONE
  37. ZYRTEC [Concomitant]
     Active Substance: CETIRIZINE HYDROCHLORIDE
  38. PROPRANOLOL [Concomitant]
     Active Substance: PROPRANOLOL\PROPRANOLOL HYDROCHLORIDE
  39. RITALIN [Concomitant]
     Active Substance: METHYLPHENIDATE HYDROCHLORIDE
  40. TOPIRAMATE. [Concomitant]
     Active Substance: TOPIRAMATE
  41. ERYTHROMYCIN. [Concomitant]
     Active Substance: ERYTHROMYCIN
  42. REFRESH P.M. [Concomitant]
     Active Substance: MINERAL OIL\PETROLATUM
  43. MUCINEX D [Concomitant]
     Active Substance: GUAIFENESIN\PSEUDOEPHEDRINE HYDROCHLORIDE

REACTIONS (8)
  - Malnutrition [Unknown]
  - Osteopenia [Unknown]
  - Irritable bowel syndrome [Not Recovered/Not Resolved]
  - Dry eye [Not Recovered/Not Resolved]
  - Migraine [Recovering/Resolving]
  - Abnormal dreams [Unknown]
  - Depression [Not Recovered/Not Resolved]
  - Fatigue [Unknown]

NARRATIVE: CASE EVENT DATE: 2015
